FAERS Safety Report 8219739-5 (Version None)
Quarter: 2012Q1

REPORT INFORMATION
  Report Type: 
  Country: None (occurrence: None)
  Receive Date: 20120319
  Receipt Date: 20120309
  Transmission Date: 20120608
  Serious: Yes (Other)
  Sender: FDA-Public Use
  Company Number: US-ASTRAZENECA-2009SE31333

PATIENT
  Age: 54 Year
  Sex: Female

DRUGS (2)
  1. SEROQUEL [Suspect]
     Indication: BIPOLAR DISORDER
     Route: 048
  2. SYMBICORT [Suspect]
     Route: 055

REACTIONS (8)
  - TREMOR [None]
  - LOSS OF CONSCIOUSNESS [None]
  - CHRONIC OBSTRUCTIVE PULMONARY DISEASE [None]
  - GENERALISED ERYTHEMA [None]
  - WEIGHT INCREASED [None]
  - BLOOD POTASSIUM DECREASED [None]
  - DRUG DOSE OMISSION [None]
  - DYSPNOEA [None]
